FAERS Safety Report 6794295-7 (Version None)
Quarter: 2010Q2

REPORT INFORMATION
  Report Type: 
  Country: None (occurrence: None)
  Receive Date: 20100625
  Receipt Date: 20100615
  Transmission Date: 20101027
  Serious: No
  Sender: FDA-Public Use
  Company Number: US-BIOGENIDEC-2010BI020535

PATIENT
  Age: 45 Year
  Sex: Female

DRUGS (2)
  1. TYSABRI [Suspect]
     Indication: MULTIPLE SCLEROSIS
     Route: 042
     Dates: start: 20080403, end: 20080728
  2. TYSABRI [Suspect]
     Route: 042
     Dates: start: 20090223

REACTIONS (3)
  - DYSARTHRIA [None]
  - DYSPEPSIA [None]
  - EYELID PTOSIS [None]
